FAERS Safety Report 7985205-5 (Version None)
Quarter: 2011Q4

REPORT INFORMATION
  Report Type: 
  Country: None (occurrence: None)
  Receive Date: 20111216
  Receipt Date: 20111207
  Transmission Date: 20120403
  Serious: Yes (Hospitalization)
  Sender: FDA-Public Use
  Company Number: NL-JNJFOC-20111204067

PATIENT
  Sex: Female
  Weight: 56.02 kg

DRUGS (12)
  1. RITUXIMAB [Suspect]
     Indication: DIFFUSE LARGE B-CELL LYMPHOMA
     Route: 042
     Dates: start: 20080131
  2. RITUXIMAB [Suspect]
     Route: 042
     Dates: start: 20110318
  3. CYCLOPHOSPHAMIDE [Suspect]
     Route: 042
     Dates: start: 20110318
  4. DOXORUBICIN HCL [Suspect]
     Indication: DIFFUSE LARGE B-CELL LYMPHOMA
     Route: 042
     Dates: start: 20080131
  5. NEUPOGEN [Suspect]
     Route: 058
     Dates: start: 20110319
  6. VINCRISTINE [Suspect]
     Indication: DIFFUSE LARGE B-CELL LYMPHOMA
     Route: 042
     Dates: start: 20080131
  7. NEUPOGEN [Suspect]
     Indication: DIFFUSE LARGE B-CELL LYMPHOMA
     Route: 058
     Dates: start: 20080201
  8. PREDNISONE TAB [Suspect]
     Indication: DIFFUSE LARGE B-CELL LYMPHOMA
     Route: 048
     Dates: start: 20110318
  9. CYCLOPHOSPHAMIDE [Suspect]
     Indication: DIFFUSE LARGE B-CELL LYMPHOMA
     Route: 042
     Dates: start: 20080131
  10. VINCRISTINE [Suspect]
     Route: 042
     Dates: start: 20110318
  11. DOXORUBICIN HCL [Suspect]
     Route: 042
     Dates: start: 20110318
  12. PREDNISONE TAB [Suspect]
     Route: 048
     Dates: start: 20080131

REACTIONS (2)
  - FEBRILE NEUTROPENIA [None]
  - INTERSTITIAL LUNG DISEASE [None]
